FAERS Safety Report 14223888 (Version 1)
Quarter: 2017Q4

REPORT INFORMATION
  Report Type: Spontaneous
  Country: US (occurrence: US)
  Receive Date: 20171125
  Receipt Date: 20171125
  Transmission Date: 20180321
  Serious: Yes (Other)
  Sender: FDA-Public Use
  Company Number: US-JNJFOC-20171117829

PATIENT
  Sex: Female

DRUGS (1)
  1. VISINE MAXIMUM STRENGTH REDNESS RELIEF FORMULA [Suspect]
     Active Substance: GLYCERIN\HYPROMELLOSES\POLYETHYLENE GLYCOL 400\TETRAHYDROZOLINE HYDROCHLORIDE
     Indication: KERATOCONUS
     Route: 047

REACTIONS (3)
  - Product use in unapproved indication [Unknown]
  - Keratoconus [Unknown]
  - Dry eye [Unknown]
